FAERS Safety Report 24856479 (Version 1)
Quarter: 2025Q1

REPORT INFORMATION
  Report Type: Spontaneous
  Country: US (occurrence: None)
  Receive Date: 20250116
  Receipt Date: 20250116
  Transmission Date: 20250408
  Serious: No
  Sender: FDA-CTU
  Company Number: None

PATIENT

DRUGS (1)
  1. CLONIDINE HYDROCHLORIDE [Suspect]
     Active Substance: CLONIDINE HYDROCHLORIDE

REACTIONS (4)
  - Drug hypersensitivity [None]
  - Contraindicated product prescribed [None]
  - Adverse drug reaction [None]
  - Toxicity to various agents [None]
